FAERS Safety Report 10533960 (Version 1)
Quarter: 2014Q4

REPORT INFORMATION
  Report Type: Spontaneous
  Country: US (occurrence: None)
  Receive Date: 20141020
  Receipt Date: 20141020
  Transmission Date: 20150529
  Serious: Yes (Death)
  Sender: FDA-Public Use
  Company Number: INT_00475_2014

PATIENT
  Sex: Female

DRUGS (2)
  1. TREBANANIB [Suspect]
     Active Substance: TREBANANIB
     Indication: OVARIAN EPITHELIAL CANCER RECURRENT
     Route: 042
  2. PACLITAXEL. [Suspect]
     Active Substance: PACLITAXEL
     Indication: OVARIAN EPITHELIAL CANCER RECURRENT
     Dosage: (80 MG/M2 1X/WEEK, [3 WEEKS ON, 1 WEEK OFF] INTRAVENOUS (NOT OTHERWISE SPECIFIED))
     Route: 042

REACTIONS (1)
  - Abdominal pain [None]
